FAERS Safety Report 5957707-4 (Version None)
Quarter: 2008Q4

REPORT INFORMATION
  Report Type: 
  Country: None (occurrence: None)
  Receive Date: 20081117
  Receipt Date: 20081002
  Transmission Date: 20090506
  Serious: Yes (Hospitalization)
  Sender: FDA-Public Use
  Company Number: WAES 0712CHE00016

PATIENT
  Age: 65 Year
  Sex: Male

DRUGS (22)
  1. CAP VORINOSTAT [Suspect]
     Indication: MYCOSIS FUNGOIDES
     Dosage: 400 MG/DAILY PO
     Route: 048
     Dates: start: 20070502, end: 20071023
  2. TAB BEXAROTENE [Suspect]
     Indication: MYCOSIS FUNGOIDES
     Dosage: 150 MG/DAILY PO
     Route: 048
     Dates: start: 20070509, end: 20071023
  3. ACONITE (+) AQUILEGIA VULGARIS (+) BAEL [Concomitant]
  4. CITALOPRAM HYDROBROMIDE [Concomitant]
  5. DEXPANTHENOL (+) UREA (+) VITAMIN A PALM [Concomitant]
  6. FENOFIBRATE [Concomitant]
  7. HYDROCORTISONE [Concomitant]
  8. HYDROXYZINE HYDROCHLORIDE [Concomitant]
  9. INSULIN ASPART, BIPHASIC ISOPHANE [INJEC [Concomitant]
  10. INSULIN DETEMIR [Concomitant]
  11. LEVOTHYROXINE SODIUM [Concomitant]
  12. LEVOTHYROXINE SODIUM [Concomitant]
  13. LEVOTHYROXINE SODIUM [Concomitant]
  14. LOSARTAN POTASSIUM [Concomitant]
  15. MAGNESIUM (UNSPECIFIED) [Concomitant]
  16. MIRTAZAPINE [Concomitant]
  17. OXCARBAZEPINE [Concomitant]
  18. PRAVASTATIN SODIUM [Concomitant]
  19. TAMSULOSIN HCL [Concomitant]
  20. TRIAMCINOLONE [Concomitant]
  21. TRIAMCINOLONE [Concomitant]
  22. UREA [Concomitant]

REACTIONS (4)
  - EYE DISORDER [None]
  - FALL [None]
  - POLYNEUROPATHY [None]
  - POST-TRAUMATIC EPILEPSY [None]
